FAERS Safety Report 20934274 (Version 1)
Quarter: 2022Q2

REPORT INFORMATION
  Report Type: Spontaneous
  Country: US (occurrence: US)
  Receive Date: 20220608
  Receipt Date: 20220608
  Transmission Date: 20220721
  Serious: No
  Sender: FDA-Public Use
  Company Number: US-NOVARTISTESTPH-NVSC2022US132049

PATIENT
  Age: 63 Year
  Sex: Female

DRUGS (1)
  1. XIIDRA [Suspect]
     Active Substance: LIFITEGRAST
     Indication: Dry eye
     Dosage: 5 %
     Route: 065
     Dates: start: 20210601, end: 20220601

REACTIONS (3)
  - Drug intolerance [Unknown]
  - Visual acuity reduced [Unknown]
  - Eye irritation [Unknown]

NARRATIVE: CASE EVENT DATE: 20210601
